FAERS Safety Report 23202984 (Version 4)
Quarter: 2023Q4

REPORT INFORMATION
  Report Type: Spontaneous
  Country: US (occurrence: US)
  Receive Date: 20231120
  Receipt Date: 20231213
  Transmission Date: 20240110
  Serious: No
  Sender: FDA-Public Use
  Company Number: US-BIOGEN-2023BI01234972

PATIENT
  Age: 24 Year
  Sex: Female

DRUGS (5)
  1. VUMERITY [Suspect]
     Active Substance: DIROXIMEL FUMARATE
     Indication: Multiple sclerosis
     Dosage: TAKE 1 CAPSULE (231MG) BY MOUTH TWICE DAILY FOR THE FIRST 7 DAYS
     Route: 050
  2. VUMERITY [Suspect]
     Active Substance: DIROXIMEL FUMARATE
     Dosage: THEN TAKE 2 CAPSULES (462MG) TWICE DAILY THEREAFTER
     Route: 050
     Dates: start: 20231206
  3. VUMERITY [Suspect]
     Active Substance: DIROXIMEL FUMARATE
     Route: 050
     Dates: start: 202310
  4. VITAMIN D3 [Concomitant]
     Active Substance: CHOLECALCIFEROL
     Route: 050
  5. VITAMIN B12 [Concomitant]
     Active Substance: CYANOCOBALAMIN
     Route: 050

REACTIONS (8)
  - Product dose omission in error [Unknown]
  - Product dose omission issue [Unknown]
  - Abdominal pain lower [Not Recovered/Not Resolved]
  - Multiple sclerosis [Unknown]
  - Renal pain [Unknown]
  - Abdominal pain upper [Unknown]
  - Flushing [Unknown]
  - Diarrhoea [Unknown]

NARRATIVE: CASE EVENT DATE: 20231205
